FAERS Safety Report 8707346 (Version 2)
Quarter: 2013Q4

REPORT INFORMATION
  Report Type: Spontaneous
  Country: US (occurrence: US)
  Receive Date: 20120803
  Receipt Date: 20131031
  Transmission Date: 20140711
  Serious: Yes (Hospitalization, Other)
  Sender: FDA-Public Use
  Company Number: US-MERCK-1207USA011303

PATIENT
  Sex: Female

DRUGS (5)
  1. ZOCOR [Suspect]
     Dosage: 20 MG, QD
     Route: 048
  2. AZOR (AMLODIPINE BESYLATE (+) OLMESARTAN MEDOXOMIL) [Interacting]
     Dosage: 10-40
     Route: 048
  3. AZOR (AMLODIPINE BESYLATE (+) OLMESARTAN MEDOXOMIL) [Interacting]
     Dosage: 5 MG, QD
     Route: 048
  4. METFORMIN [Concomitant]
  5. ASPIRIN [Concomitant]

REACTIONS (5)
  - Drug interaction [Unknown]
  - Feeling abnormal [Unknown]
  - Balance disorder [Unknown]
  - Muscular weakness [Unknown]
  - Blood magnesium decreased [Unknown]
